FAERS Safety Report 4562691-4 (Version None)
Quarter: 2005Q1

REPORT INFORMATION
  Report Type: 
  Country: None (occurrence: None)
  Receive Date: 20050124
  Receipt Date: 20050110
  Transmission Date: 20050727
  Serious: Yes (Death)
  Sender: FDA-Public Use
  Company Number: 2005015419

PATIENT
  Age: 30 Year
  Sex: Male
  Weight: 48 kg

DRUGS (4)
  1. SOLU-MEDROL [Suspect]
     Indication: ILL-DEFINED DISORDER
  2. ACYCLOVIR [Suspect]
     Indication: ILL-DEFINED DISORDER
     Dates: end: 20041004
  3. CELLCEPT [Suspect]
     Indication: ILL-DEFINED DISORDER
     Dosage: ORAL
     Route: 048
     Dates: start: 20040215, end: 20041004
  4. ANTIFUNGALS (ANTIFUNGALS) [Suspect]
     Indication: ILL-DEFINED DISORDER
     Dosage: 1 GRAM (1 GRAM, 1 IN 1 D), ORAL
     Route: 048
     Dates: start: 20040930

REACTIONS (13)
  - ASCITES [None]
  - BLOOD ALKALINE PHOSPHATASE INCREASED [None]
  - COMA [None]
  - CONFUSIONAL STATE [None]
  - DIARRHOEA [None]
  - GAMMA-GLUTAMYLTRANSFERASE INCREASED [None]
  - HAEMOLYTIC ANAEMIA [None]
  - HAEMOLYTIC URAEMIC SYNDROME [None]
  - MALNUTRITION [None]
  - RENAL FAILURE [None]
  - SCLERODERMA [None]
  - SHOCK [None]
  - THROMBOCYTOPENIA [None]
